FAERS Safety Report 5049124-9 (Version None)
Quarter: 2006Q3

REPORT INFORMATION
  Report Type: 
  Country: None (occurrence: None)
  Receive Date: 20060712
  Receipt Date: 20060306
  Transmission Date: 20061208
  Serious: No
  Sender: FDA-Public Use
  Company Number: US-GLAXOSMITHKLINE-A0596299A

PATIENT
  Age: 40 Year
  Sex: Female

DRUGS (4)
  1. IMITREX [Suspect]
     Indication: MIGRAINE
     Route: 048
     Dates: start: 20000101, end: 20020101
  2. IMITREX [Suspect]
     Route: 058
  3. MAXALT [Concomitant]
  4. VICODIN [Concomitant]

REACTIONS (2)
  - HEART RATE INCREASED [None]
  - MIGRAINE [None]
